FAERS Safety Report 10524212 (Version 2)
Quarter: 2014Q4

REPORT INFORMATION
  Report Type: Spontaneous
  Country: US (occurrence: US)
  Receive Date: 20141017
  Receipt Date: 20141017
  Transmission Date: 20150528
  Serious: No
  Sender: FDA-Public Use
  Company Number: US-ELI_LILLY_AND_COMPANY-US201409007544

PATIENT
  Sex: Female

DRUGS (8)
  1. CYMBALTA [Suspect]
     Active Substance: DULOXETINE HYDROCHLORIDE
     Indication: DEPRESSION
  2. CYMBALTA [Suspect]
     Active Substance: DULOXETINE HYDROCHLORIDE
     Indication: FIBROMYALGIA
  3. DULOXETINE HYDROCHLORIDE. [Suspect]
     Active Substance: DULOXETINE HYDROCHLORIDE
     Indication: DEPRESSION
     Dosage: 20 MG, UNKNOWN
     Route: 065
  4. CYMBALTA [Suspect]
     Active Substance: DULOXETINE HYDROCHLORIDE
     Indication: ANXIETY
  5. DULOXETINE HYDROCHLORIDE. [Suspect]
     Active Substance: DULOXETINE HYDROCHLORIDE
     Indication: NECK PAIN
     Dosage: 60 MG, UNKNOWN
     Route: 065
  6. DULOXETINE HYDROCHLORIDE. [Suspect]
     Active Substance: DULOXETINE HYDROCHLORIDE
     Indication: FIBROMYALGIA
     Dosage: 30 MG, UNK
     Route: 065
  7. DULOXETINE HYDROCHLORIDE. [Suspect]
     Active Substance: DULOXETINE HYDROCHLORIDE
     Indication: ANXIETY
     Dosage: 60 MG, UNKNOWN
     Route: 065
  8. CYMBALTA [Suspect]
     Active Substance: DULOXETINE HYDROCHLORIDE
     Indication: NECK PAIN
     Dosage: 60 MG, UNKNOWN
     Route: 065
     Dates: start: 2011

REACTIONS (22)
  - Dry mouth [Unknown]
  - Hypoaesthesia [Unknown]
  - Dyspnoea [Unknown]
  - Chest pain [Unknown]
  - Flank pain [Unknown]
  - Drug withdrawal syndrome [Unknown]
  - Tremor [Unknown]
  - Muscle spasms [Unknown]
  - Skin irritation [Unknown]
  - Weight decreased [Recovered/Resolved]
  - Sneezing [Unknown]
  - Confusional state [Unknown]
  - Gastric disorder [Unknown]
  - Headache [Unknown]
  - Pain in jaw [Unknown]
  - Vision blurred [Unknown]
  - Vomiting [Unknown]
  - Eye disorder [Unknown]
  - Feeling jittery [Unknown]
  - Anxiety [Unknown]
  - Nausea [Unknown]
  - Amnesia [Unknown]
